FAERS Safety Report 19098201 (Version 1)
Quarter: 2021Q2

REPORT INFORMATION
  Report Type: Spontaneous
  Country: GB (occurrence: GB)
  Receive Date: 20210406
  Receipt Date: 20210406
  Transmission Date: 20210717
  Serious: Yes (Other)
  Sender: FDA-Public Use
  Company Number: GB-MYLANLABS-2020M1101536

PATIENT
  Age: 64 Year
  Sex: Female
  Weight: 58.35 kg

DRUGS (38)
  1. VALGANCICLOVIR. [Suspect]
     Active Substance: VALGANCICLOVIR
     Dosage: 3600 MG, BID (1800 MG, QD)
     Route: 048
  2. SODIUM CHLORIDE 0.9% [Suspect]
     Active Substance: SODIUM CHLORIDE
     Indication: HYPONATRAEMIA
     Dosage: UNK (1), MONTHLY
     Route: 042
     Dates: start: 20201028
  3. WATER FOR INJECTION [Suspect]
     Active Substance: WATER
     Indication: MEDICATION DILUTION
     Dosage: UNK (1), MONTHLY
     Dates: start: 20201028
  4. PENTAMIDINE ISETHIONATE. [Suspect]
     Active Substance: PENTAMIDINE ISETHIONATE
     Dosage: UNK
     Route: 065
  5. PENTAMIDINE [Suspect]
     Active Substance: PENTAMIDINE
     Dosage: UNK
  6. PENTAMIDINE [Suspect]
     Active Substance: PENTAMIDINE
     Indication: NEUTROPENIA
     Dosage: UNK
     Route: 065
  7. PENTAMIDINE ISETHIONATE. [Suspect]
     Active Substance: PENTAMIDINE ISETHIONATE
     Indication: ANTIFUNGAL PROPHYLAXIS
     Dosage: 240 MILLIGRAM, MONTHLY
     Route: 065
     Dates: start: 20201028
  8. PENTAMIDINE [Suspect]
     Active Substance: PENTAMIDINE
     Indication: ANTIFUNGAL PROPHYLAXIS
     Dosage: 240 MILLIGRAM, MONTHLY
     Route: 065
     Dates: start: 20201028
  9. SODIUM CHLORIDE 0.9% [Suspect]
     Active Substance: SODIUM CHLORIDE
     Dosage: UNK, MONTHLY
     Route: 065
     Dates: start: 20201028
  10. PENTAMIDINE ISETHIONATE. [Suspect]
     Active Substance: PENTAMIDINE ISETHIONATE
     Dosage: 240 MILLIGRAM, MONTHLY
     Route: 065
     Dates: start: 20201028
  11. PENTAMIDINE [Suspect]
     Active Substance: PENTAMIDINE
     Dosage: 240 MILLIGRAM, MONTHLY
     Dates: start: 20201028
  12. VALGANCICLOVIR. [Suspect]
     Active Substance: VALGANCICLOVIR
     Dosage: 3600 MILLIGRAM, QD (1800 MG, BID)
     Route: 048
     Dates: start: 20200916
  13. FILGRASTIM [Suspect]
     Active Substance: FILGRASTIM
     Dosage: UNK
     Route: 065
  14. SODIUM CHLORIDE 0.9% [Suspect]
     Active Substance: SODIUM CHLORIDE
     Indication: MEDICATION DILUTION
     Dosage: UNK (1), MONTHLY
     Route: 042
     Dates: start: 20201028
  15. SODIUM CHLORIDE 0.9% [Suspect]
     Active Substance: SODIUM CHLORIDE
     Dosage: 0.9 PERCENT
     Route: 065
     Dates: start: 20201028
  16. PENTAMIDINE [Suspect]
     Active Substance: PENTAMIDINE
     Dosage: 1 UNK, QMO
     Route: 065
     Dates: start: 20201028
  17. PENTAMIDINE [Suspect]
     Active Substance: PENTAMIDINE
     Dosage: 240 MILLIGRAM, MONTHLY
     Dates: start: 20201028
  18. VALGANCICLOVIR. [Suspect]
     Active Substance: VALGANCICLOVIR
     Indication: CYTOMEGALOVIRUS CHORIORETINITIS
     Dosage: 1800 MILLIGRAM, QD (BD)
     Route: 048
     Dates: start: 20200916
  19. PENTAMIDINE ISETHIONATE. [Suspect]
     Active Substance: PENTAMIDINE ISETHIONATE
     Dosage: 240 MILLIGRAM, MONTHLY (240 MG, QMO)
     Route: 065
     Dates: start: 20201028
  20. PENTAMIDINE [Suspect]
     Active Substance: PENTAMIDINE
     Indication: NEUTROPENIA
     Dosage: UNK
     Route: 065
  21. PENTAMIDINE [Suspect]
     Active Substance: PENTAMIDINE
     Dosage: 240 MILLIGRAM, MONTHLY
     Route: 065
     Dates: start: 20201028
  22. WATER FOR INJECTION [Suspect]
     Active Substance: WATER
     Dosage: UNK
     Route: 065
     Dates: start: 20201028
  23. PENTAMIDINE ISETHIONATE. [Suspect]
     Active Substance: PENTAMIDINE ISETHIONATE
     Indication: NEUTROPENIA
     Dosage: 240 MILLIGRAM, MONTHLY
     Route: 065
     Dates: start: 20201028
  24. PENTAMIDINE ISETHIONATE. [Suspect]
     Active Substance: PENTAMIDINE ISETHIONATE
     Dosage: UNK
     Route: 065
  25. PENTAMIDINE [Suspect]
     Active Substance: PENTAMIDINE
     Dosage: UNK
  26. FILGRASTIM [Suspect]
     Active Substance: FILGRASTIM
     Indication: NEUTROPENIA
     Dosage: 60 MEGA?INTERNATIONAL UNIT, QW
     Route: 058
     Dates: start: 20201020
  27. TOLVAPTAN [Suspect]
     Active Substance: TOLVAPTAN
     Indication: HYPONATRAEMIA
     Dosage: 75 MILLIGRAM, QD (OD)
     Route: 048
     Dates: start: 20200218
  28. SODIUM CHLORIDE 0.9% [Suspect]
     Active Substance: SODIUM CHLORIDE
     Dosage: 1 (UNIT UNKNOWN), MONTHLY
     Route: 042
     Dates: start: 20201028
  29. WATER FOR INJECTION [Suspect]
     Active Substance: WATER
     Dosage: UNK (1), MONTHLY
     Dates: start: 20201028
  30. WATER FOR INJECTION [Suspect]
     Active Substance: WATER
     Dosage: UNK
     Route: 065
  31. WATER FOR INJECTION [Suspect]
     Active Substance: WATER
     Dosage: 1 (UNIT UNKNOWN), MONTHLY
     Route: 065
     Dates: start: 20201028
  32. PENTAMIDINE ISETHIONATE. [Suspect]
     Active Substance: PENTAMIDINE ISETHIONATE
     Dosage: UNK
     Route: 065
  33. VALGANCICLOVIR. [Suspect]
     Active Substance: VALGANCICLOVIR
     Dosage: 1800 MILLIGRAM (1800 MG, TWICE DAILY, ALSO REPORTED AS EVERY DAY)
     Route: 048
     Dates: start: 20200916
  34. SODIUM CHLORIDE 0.9% [Suspect]
     Active Substance: SODIUM CHLORIDE
     Dosage: 0.9 PERCENT
     Route: 065
  35. WATER FOR INJECTION [Suspect]
     Active Substance: WATER
     Dosage: 1 UNK (QM)
     Route: 065
     Dates: start: 20201028
  36. PENTAMIDINE ISETHIONATE. [Suspect]
     Active Substance: PENTAMIDINE ISETHIONATE
     Dosage: 240 MILLIGRAM, MONTHLY (240 MG, QMO)
     Route: 065
     Dates: start: 20201028
  37. PENTAMIDINE [Suspect]
     Active Substance: PENTAMIDINE
     Indication: PROPHYLAXIS
     Dosage: 1 DOSAGE FORM, MONTHLY SOLUTION FOR INJECTION
     Route: 065
     Dates: start: 20201028
  38. PENTAMIDINE [Suspect]
     Active Substance: PENTAMIDINE
     Indication: ANTIFUNGAL PROPHYLAXIS
     Dosage: 1 DOSAGE FORM, MONTHLY (1 DOSAGE FORM, MONTHLY SOLUTION FOR INJECTION)
     Route: 065
     Dates: start: 20201028

REACTIONS (5)
  - Infusion site swelling [Recovered/Resolved]
  - Pruritus [Recovered/Resolved]
  - Intentional product misuse [Unknown]
  - Infusion site erythema [Recovered/Resolved]
  - Off label use [Unknown]

NARRATIVE: CASE EVENT DATE: 20201020
